FAERS Safety Report 9175217 (Version 1)
Quarter: 2013Q1

REPORT INFORMATION
  Report Type: Spontaneous
  Country: PT (occurrence: PT)
  Receive Date: 20130320
  Receipt Date: 20130320
  Transmission Date: 20140127
  Serious: Yes (Other)
  Sender: FDA-Public Use
  Company Number: PT-TEVA-391625ISR

PATIENT
  Age: 48 Year
  Sex: Female

DRUGS (5)
  1. QUETIAPINE [Suspect]
     Route: 065
  2. OLANZAPINE [Suspect]
     Route: 065
  3. ANTIRETROVIRALS [Suspect]
  4. PITAVASTATIN [Concomitant]
     Route: 065
  5. PSYCHOACTIVE DRUGS [Concomitant]

REACTIONS (1)
  - Pemphigoid [Unknown]
